FAERS Safety Report 4729854-6 (Version None)
Quarter: 2005Q3

REPORT INFORMATION
  Report Type: 
  Country: None (occurrence: None)
  Receive Date: 20050801
  Receipt Date: 20050714
  Transmission Date: 20060218
  Serious: Yes (Congenital Anomaly)
  Sender: FDA-Public Use
  Company Number: FR-MERCK-0507FRA00063B1

PATIENT
  Sex: Female
  Weight: 3 kg

DRUGS (2)
  1. ALDOMET [Suspect]
     Indication: HYPERTENSION
  2. CANDESARTAN [Suspect]
     Indication: HYPERTENSION

REACTIONS (2)
  - DELAYED FONTANELLE CLOSURE [None]
  - RENAL TUBULAR DISORDER [None]
